FAERS Safety Report 18695257 (Version 1)
Quarter: 2021Q1

REPORT INFORMATION
  Report Type: Spontaneous
  Country: US (occurrence: US)
  Receive Date: 20210101
  Receipt Date: 20210101
  Transmission Date: 20210419
  Serious: Yes (Hospitalization)
  Sender: FDA-Public Use
  Company Number: None

PATIENT
  Age: 53 Year
  Sex: Female
  Weight: 72.4 kg

DRUGS (12)
  1. BENZTROPINE. [Concomitant]
     Active Substance: BENZTROPINE
  2. METOPROLOL. [Concomitant]
     Active Substance: METOPROLOL
  3. VEKLURY [Suspect]
     Active Substance: REMDESIVIR
     Indication: COVID-19
     Route: 042
     Dates: start: 20201225, end: 20201225
  4. DEXAMETHASONE. [Concomitant]
     Active Substance: DEXAMETHASONE
  5. LACOSAMIDE. [Concomitant]
     Active Substance: LACOSAMIDE
  6. TIZANIDINE. [Concomitant]
     Active Substance: TIZANIDINE
  7. ELIQUIS [Concomitant]
     Active Substance: APIXABAN
  8. LEVETIRACETAM. [Concomitant]
     Active Substance: LEVETIRACETAM
  9. VEKLURY [Suspect]
     Active Substance: REMDESIVIR
     Indication: COVID-19
     Route: 042
     Dates: start: 20201224, end: 20201224
  10. BACLOFEN. [Concomitant]
     Active Substance: BACLOFEN
  11. ATORVASTIN [Concomitant]
     Active Substance: ATORVASTATIN
  12. VALPROIC ACID. [Concomitant]
     Active Substance: VALPROIC ACID

REACTIONS (1)
  - Transaminases increased [None]

NARRATIVE: CASE EVENT DATE: 20201226
